FAERS Safety Report 15595884 (Version 2)
Quarter: 2018Q4

REPORT INFORMATION
  Report Type: Report from Study
  Country: None (occurrence: BR)
  Receive Date: 20181107
  Receipt Date: 20181110
  Transmission Date: 20190205
  Serious: Yes (Other)
  Sender: FDA-Public Use
  Company Number: BR-ABBVIE-17K-020-2177559-00

PATIENT
  Age: 69 Year
  Sex: Female
  Weight: 50.7 kg

DRUGS (7)
  1. HUMIRA [Suspect]
     Active Substance: ADALIMUMAB
     Indication: RHEUMATOID ARTHRITIS
     Route: 058
     Dates: start: 20120119
  2. VITAMIN D [Suspect]
     Active Substance: CHOLECALCIFEROL
     Indication: BACK PAIN
     Route: 065
  3. MAGNESIUM [Concomitant]
     Active Substance: MAGNESIUM
     Indication: MUSCLE HYPERTROPHY
     Dosage: MAGISTRAL FORMULA
  4. PREDNISONE. [Concomitant]
     Active Substance: PREDNISONE
     Indication: RHEUMATOID ARTHRITIS
  5. CORTISONE [Suspect]
     Active Substance: CORTISONE\HYDROCORTISONE
     Indication: PRODUCT USED FOR UNKNOWN INDICATION
     Route: 065
     Dates: start: 1992
  6. VITAMIN C [Suspect]
     Active Substance: ASCORBIC ACID
     Indication: MUSCLE ATROPHY
     Dosage: MAGISTRAL FORMULA
     Route: 065
  7. VITAMIN A [Suspect]
     Active Substance: VITAMIN A
     Indication: MUSCLE HYPERTROPHY
     Dosage: MAGISTRAL FORMULA
     Route: 065

REACTIONS (11)
  - Spinal pain [Not Recovered/Not Resolved]
  - Device breakage [Unknown]
  - Leukaemia [Unknown]
  - Body height decreased [Recovering/Resolving]
  - Lymphocyte count increased [Not Recovered/Not Resolved]
  - Splenomegaly [Not Recovered/Not Resolved]
  - Nausea [Recovered/Resolved]
  - Foot deformity [Unknown]
  - Osteoarthritis [Unknown]
  - Osteoporosis [Unknown]
  - Spinal fracture [Recovering/Resolving]

NARRATIVE: CASE EVENT DATE: 2016
